FAERS Safety Report 5317210-1 (Version None)
Quarter: 2007Q2

REPORT INFORMATION
  Report Type: 
  Country: None (occurrence: None)
  Receive Date: 20070504
  Receipt Date: 20070425
  Transmission Date: 20071010
  Serious: Yes (Other)
  Sender: FDA-Public Use
  Company Number: CA-PFIZER INC-2007028767

PATIENT
  Sex: Female
  Weight: 89.5 kg

DRUGS (16)
  1. LYRICA [Suspect]
     Indication: CARPAL TUNNEL SYNDROME
     Route: 048
     Dates: start: 20060516, end: 20060101
  2. LYRICA [Suspect]
     Indication: BACK PAIN
  3. LYRICA [Suspect]
     Indication: BURNING SENSATION
  4. LYRICA [Suspect]
     Indication: DIABETIC NEUROPATHY
  5. ARTHROTEC [Concomitant]
     Route: 048
  6. FENTANYL [Concomitant]
     Route: 062
  7. OXYCOCET [Concomitant]
  8. DOMPERIDONE [Concomitant]
  9. DETROL [Concomitant]
  10. L-THYROXIN [Concomitant]
  11. HUMALOG [Concomitant]
  12. AMLODIPINE [Concomitant]
  13. METOPROLOL SUCCINATE [Concomitant]
  14. RAMIPRIL [Concomitant]
  15. ACETYLSALICYLIC ACID SRT [Concomitant]
  16. LASIX [Concomitant]

REACTIONS (5)
  - ACTIVITIES OF DAILY LIVING IMPAIRED [None]
  - CREATININE RENAL CLEARANCE DECREASED [None]
  - DEPRESSION [None]
  - EMOTIONAL DISORDER [None]
  - PAIN [None]
